FAERS Safety Report 16679074 (Version 2)
Quarter: 2019Q4

REPORT INFORMATION
  Report Type: Spontaneous
  Country: JP (occurrence: JP)
  Receive Date: 20190807
  Receipt Date: 20191007
  Transmission Date: 20200122
  Serious: Yes (Death, Hospitalization, Other)
  Sender: FDA-Public Use
  Company Number: JP-009507513-1906JPN000112J

PATIENT
  Age: 68 Year
  Sex: Male

DRUGS (5)
  1. PEMETREXED DISODIUM [Suspect]
     Active Substance: PEMETREXED DISODIUM
     Indication: NON-SMALL CELL LUNG CANCER
     Dosage: 810 MILLIGRAM, Q3W
     Route: 041
     Dates: start: 20190109, end: 20190424
  2. EMEND [Concomitant]
     Active Substance: APREPITANT
     Indication: VOMITING
     Dosage: 95 MILLIGRAM, TID
     Route: 048
     Dates: start: 20190109, end: 20190315
  3. KEYTRUDA [Suspect]
     Active Substance: PEMBROLIZUMAB
     Indication: NON-SMALL CELL LUNG CANCER
     Dosage: 200 MILLIGRAM, Q3W
     Route: 041
     Dates: start: 20190109, end: 20190424
  4. CARBOPLATIN. [Suspect]
     Active Substance: CARBOPLATIN
     Indication: NON-SMALL CELL LUNG CANCER
     Dosage: 500 MILLIGRAM, Q3W
     Route: 041
     Dates: start: 20190109, end: 20190313
  5. PANVITAN [Concomitant]
     Active Substance: VITAMINS
     Indication: PROPHYLAXIS
     Dosage: 1 GRAM, QD
     Route: 048
     Dates: start: 20181228, end: 20190519

REACTIONS (3)
  - Cytomegalovirus enterocolitis [Fatal]
  - Interstitial lung disease [Recovering/Resolving]
  - Immune-mediated enterocolitis [Fatal]

NARRATIVE: CASE EVENT DATE: 20190426
